FAERS Safety Report 9683525 (Version 2)
Quarter: 2013Q4

REPORT INFORMATION
  Report Type: Report from Study
  Country: US (occurrence: US)
  Receive Date: 20131112
  Receipt Date: 20131112
  Transmission Date: 20140711
  Serious: Yes (Hospitalization)
  Sender: FDA-Public Use
  Company Number: US-ABBVIE-13P-163-1158517-00

PATIENT
  Age: 22 Year
  Sex: Female
  Weight: 108.96 kg

DRUGS (9)
  1. HUMIRA [Suspect]
     Indication: CROHN^S DISEASE
     Dates: start: 20130913, end: 20130913
  2. HUMIRA [Suspect]
     Indication: COLITIS ULCERATIVE
     Dates: start: 20130920, end: 20130920
  3. HUMIRA [Suspect]
     Dates: start: 20130927, end: 20131018
  4. VICODIN 5/500 [Suspect]
     Indication: ABDOMINAL PAIN
     Route: 048
     Dates: start: 2012
  5. TYLENOL W/CODEINE NO. 3 [Suspect]
     Indication: ABDOMINAL PAIN
     Dosage: 5/325 MG
  6. TYLENOL WITH CODEINE [Suspect]
     Indication: ABDOMINAL PAIN
     Dosage: 10/325 MG
  7. OMEPRAZOLE [Concomitant]
     Indication: PRODUCT USED FOR UNKNOWN INDICATION
  8. DULCOLAX [Concomitant]
     Indication: PRODUCT USED FOR UNKNOWN INDICATION
  9. SULFAMAG [Concomitant]
     Indication: PRODUCT USED FOR UNKNOWN INDICATION

REACTIONS (14)
  - Urinary tract infection [Unknown]
  - Feeling abnormal [Not Recovered/Not Resolved]
  - Abdominal pain [Unknown]
  - Injection site rash [Unknown]
  - Injection site vesicles [Not Recovered/Not Resolved]
  - Injection site reaction [Not Recovered/Not Resolved]
  - Feeling jittery [Unknown]
  - Feeling abnormal [Not Recovered/Not Resolved]
  - Injection site pruritus [Unknown]
  - Suicidal ideation [Not Recovered/Not Resolved]
  - Anger [Not Recovered/Not Resolved]
  - Drug ineffective [Unknown]
  - Hyperhidrosis [Unknown]
  - Pain [Not Recovered/Not Resolved]
